FAERS Safety Report 9377145 (Version 1)
Quarter: 2013Q3

REPORT INFORMATION
  Report Type: Spontaneous
  Country: GB (occurrence: GB)
  Receive Date: 20130701
  Receipt Date: 20130701
  Transmission Date: 20140515
  Serious: Yes (Other)
  Sender: FDA-Public Use
  Company Number: GB-UCBSA-090332

PATIENT
  Age: 21 Year
  Sex: Male

DRUGS (2)
  1. KEPPRA [Suspect]
     Indication: CONVULSION
     Dosage: UPTO 3G DAILY
  2. LAMOTRIGINE [Concomitant]
     Indication: CONVULSION
     Dosage: 500MG DAILY

REACTIONS (1)
  - Seizure cluster [Unknown]
